FAERS Safety Report 10421792 (Version 1)
Quarter: 2014Q3

REPORT INFORMATION
  Report Type: Spontaneous
  Country: NO (occurrence: NO)
  Receive Date: 20140901
  Receipt Date: 20140901
  Transmission Date: 20150326
  Serious: Yes (Hospitalization, Disabling)
  Sender: FDA-Public Use
  Company Number: NO-ACCORD-025599

PATIENT
  Age: 61 Year
  Sex: Female
  Weight: 48 kg

DRUGS (25)
  1. METHOTREXATE [Suspect]
     Active Substance: METHOTREXATE
     Indication: DIFFUSE LARGE B-CELL LYMPHOMA STAGE II
     Dosage: 2 DOSES IN TOTAL, 20-DEC-2013 AND 31-JAN-2014
     Route: 037
     Dates: start: 20131220, end: 20140131
  2. BENZYLPENICILLIN [Concomitant]
     Active Substance: PENICILLIN G
     Indication: PNEUMONIA STREPTOCOCCAL
  3. BETMIGA [Concomitant]
     Active Substance: MIRABEGRON
  4. NEURONTIN [Concomitant]
     Active Substance: GABAPENTIN
  5. OXYCODONE [Concomitant]
     Active Substance: OXYCODONE
     Dosage: AS NEEDED
  6. PARACET [Concomitant]
     Active Substance: ACETAMINOPHEN
  7. LACTULOSE. [Concomitant]
     Active Substance: LACTULOSE
  8. VINCRISTINE [Concomitant]
     Active Substance: VINCRISTINE
     Indication: DIFFUSE LARGE B-CELL LYMPHOMA
     Dosage: R-CHOP-21
     Route: 042
     Dates: start: 20131129, end: 20140131
  9. SYMBICORT [Concomitant]
     Active Substance: BUDESONIDE\FORMOTEROL FUMARATE DIHYDRATE
     Route: 055
  10. ZOLOFT [Concomitant]
     Active Substance: SERTRALINE HYDROCHLORIDE
  11. VALIUM [Concomitant]
     Active Substance: DIAZEPAM
  12. PERSANTIN RETARD [Concomitant]
     Active Substance: DIPYRIDAMOLE
     Dates: end: 20140201
  13. SOMAC [Concomitant]
     Active Substance: PANTOPRAZOLE SODIUM
  14. OXYCONTIN [Concomitant]
     Active Substance: OXYCODONE HYDROCHLORIDE
  15. VITAMIN B12 [Concomitant]
     Active Substance: CYANOCOBALAMIN
  16. SINGULAIR [Concomitant]
     Active Substance: MONTELUKAST SODIUM
  17. CYCLOPHOSPHAMIDE/CYCLOPHOSPHAMIDE MONOHYDRATE [Concomitant]
     Indication: DIFFUSE LARGE B-CELL LYMPHOMA
     Dosage: R-CHOP-21
     Route: 042
     Dates: start: 20131129, end: 20140131
  18. ATROVENT [Concomitant]
     Active Substance: IPRATROPIUM BROMIDE
     Dosage: AS NEEDED, 4-6 TIMES DAILY
  19. VENTOLINE [Concomitant]
     Active Substance: ALBUTEROL
     Dosage: AS NEEDED, 4-6 TIMES DAILY
  20. DOXORUBICIN [Concomitant]
     Active Substance: DOXORUBICIN
     Indication: DIFFUSE LARGE B-CELL LYMPHOMA
     Dosage: R-CHOP-21
     Route: 042
     Dates: start: 20131129, end: 20140131
  21. MOGADON [Concomitant]
     Active Substance: NITRAZEPAM
  22. ATORVASTATIN [Concomitant]
     Active Substance: ATORVASTATIN
  23. ACETYLSALICYLIC ACID [Concomitant]
     Active Substance: ASPIRIN
     Route: 048
     Dates: end: 20140212
  24. AFIPRAN [Concomitant]
     Dosage: AS NEEDED
  25. RITUXIMAB [Concomitant]
     Active Substance: RITUXIMAB
     Indication: DIFFUSE LARGE B-CELL LYMPHOMA
     Dosage: R-CHOP-21
     Route: 042
     Dates: start: 20131129, end: 20140131

REACTIONS (4)
  - Diplegia [Not Recovered/Not Resolved]
  - Myelopathy [Not Recovered/Not Resolved]
  - Faecal incontinence [Not Recovered/Not Resolved]
  - Urinary incontinence [Not Recovered/Not Resolved]

NARRATIVE: CASE EVENT DATE: 20140214
